FAERS Safety Report 13384640 (Version 1)
Quarter: 2017Q1

REPORT INFORMATION
  Report Type: Spontaneous
  Country: US (occurrence: US)
  Receive Date: 20170329
  Receipt Date: 20170329
  Transmission Date: 20170429
  Serious: No
  Sender: FDA-Public Use
  Company Number: US-ALLERGAN-1701961US

PATIENT
  Age: 65 Year
  Sex: Male

DRUGS (2)
  1. BABY ASPIRIN [Concomitant]
     Active Substance: ASPIRIN
  2. NORCO [Suspect]
     Active Substance: ACETAMINOPHEN\HYDROCODONE BITARTRATE
     Indication: BACK PAIN
     Dosage: UNK
     Route: 048
     Dates: start: 201612

REACTIONS (4)
  - Malaise [Not Recovered/Not Resolved]
  - Haemorrhage [Unknown]
  - Dysgeusia [Unknown]
  - Dyspepsia [Unknown]
